FAERS Safety Report 16900539 (Version 2)
Quarter: 2020Q1

REPORT INFORMATION
  Report Type: Spontaneous
  Country: US (occurrence: US)
  Receive Date: 20191009
  Receipt Date: 20200212
  Transmission Date: 20200409
  Serious: Yes (Life-Threatening, Disabling, Other)
  Sender: FDA-Public Use
  Company Number: US-SA-2019SA278663

PATIENT
  Age: 78 Year
  Sex: Female
  Weight: 61.5 kg

DRUGS (27)
  1. AMLODIPINE [Concomitant]
     Active Substance: AMLODIPINE BESYLATE
     Dosage: 5 MG
     Dates: start: 20190513, end: 20191008
  2. METOPROLOL. [Concomitant]
     Active Substance: METOPROLOL
     Dosage: 25 MG
  3. NITROGLYCERINE [Concomitant]
     Active Substance: NITROGLYCERIN
     Dosage: 0.5 MG
     Dates: start: 20191008, end: 20191008
  4. PLAVIX [Suspect]
     Active Substance: CLOPIDOGREL BISULFATE
     Dosage: 75 MG
     Route: 048
     Dates: start: 20190731, end: 20190731
  5. METOPROLOL. [Concomitant]
     Active Substance: METOPROLOL
     Dosage: 25 MG
  6. ACETYLSALICYLIC ACID [Suspect]
     Active Substance: ASPIRIN
     Dosage: 100 MG
     Route: 048
     Dates: start: 20190801, end: 20190818
  7. ONDANSETRON [Concomitant]
     Active Substance: ONDANSETRON
     Dosage: 4 MG
     Dates: start: 20191008, end: 20191008
  8. CEFAZOLIN [Concomitant]
     Active Substance: CEFAZOLIN
     Dosage: 1 G
     Dates: start: 20191008, end: 20191008
  9. ACETYLSALICYLIC ACID [Suspect]
     Active Substance: ASPIRIN
     Dosage: 100 MG
     Route: 048
     Dates: start: 20190731, end: 20190731
  10. FENTANYL. [Concomitant]
     Active Substance: FENTANYL
     Dosage: 25 UG
     Dates: start: 20191008, end: 20191008
  11. PROPOFOL. [Concomitant]
     Active Substance: PROPOFOL
     Dosage: 200 MG
     Dates: start: 20191008, end: 20191008
  12. ACETYLSALICYLIC ACID [Suspect]
     Active Substance: ASPIRIN
     Dosage: 100 MG, UNK
     Route: 048
     Dates: start: 20190730
  13. ACETYLSALICYLIC ACID [Suspect]
     Active Substance: ASPIRIN
     Dosage: 100 MG
     Route: 048
     Dates: start: 20190819, end: 20190819
  14. AMLODIPINE [Concomitant]
     Active Substance: AMLODIPINE BESYLATE
     Dosage: 5 MG
     Dates: start: 20190513, end: 20191008
  15. EPHEDRINE. [Concomitant]
     Active Substance: EPHEDRINE
     Dosage: 25 MG
     Dates: start: 20191008, end: 20191008
  16. ACETYLSALICYLIC ACID [Suspect]
     Active Substance: ASPIRIN
     Dosage: 100 MG
     Route: 048
     Dates: start: 20190820, end: 20190924
  17. ACETYLSALICYLIC ACID [Suspect]
     Active Substance: ASPIRIN
     Dosage: 100 MG
     Route: 048
     Dates: start: 20190925, end: 20190925
  18. LIDOCAINE. [Concomitant]
     Active Substance: LIDOCAINE
     Dosage: 70 MG
     Dates: start: 20191008, end: 20191008
  19. PHENYLEPHRINE [Concomitant]
     Active Substance: PHENYLEPHRINE HYDROCHLORIDE
     Dosage: 400 UG
     Dates: start: 20191008, end: 20191008
  20. PLAVIX [Suspect]
     Active Substance: CLOPIDOGREL BISULFATE
     Dosage: 75 MG
     Route: 048
     Dates: start: 20190801, end: 20190818
  21. ATORVASTATIN [Concomitant]
     Active Substance: ATORVASTATIN
     Dosage: 40 MG
     Dates: start: 20190513
  22. OMNIPAQUE [Concomitant]
     Active Substance: IOHEXOL
     Dosage: 110 UNK
     Dates: start: 20191008
  23. PLAVIX [Suspect]
     Active Substance: CLOPIDOGREL BISULFATE
     Dosage: 75 MG
     Route: 048
     Dates: start: 20190819, end: 20190819
  24. ACETYLSALICYLIC ACID [Suspect]
     Active Substance: ASPIRIN
     Dosage: 100 MG
     Route: 048
     Dates: start: 20190926, end: 20190926
  25. ISOVUE 370 [Concomitant]
     Active Substance: IOPAMIDOL
     Dosage: 100 UNK
     Dates: start: 20190904, end: 20190904
  26. ESCITALOPRAM [Concomitant]
     Active Substance: ESCITALOPRAM OXALATE
     Dosage: 100 MG
     Dates: start: 20190915
  27. POTASSIUM CHLORIDE. [Concomitant]
     Active Substance: POTASSIUM CHLORIDE
     Dosage: 20 UNK
     Dates: start: 20191008, end: 20191008

REACTIONS (2)
  - Speech disorder [Not Recovered/Not Resolved]
  - Ischaemic stroke [Recovering/Resolving]

NARRATIVE: CASE EVENT DATE: 20190913
